FAERS Safety Report 15083314 (Version 1)
Quarter: 2018Q2

REPORT INFORMATION
  Report Type: Spontaneous
  Country: US (occurrence: US)
  Receive Date: 20180607
  Receipt Date: 20180607
  Transmission Date: 20180711
  Serious: No
  Sender: FDA-Public Use
  Company Number: None

PATIENT

DRUGS (6)
  1. PREDNISOLONE. [Concomitant]
     Active Substance: PREDNISOLONE
  2. DUOVISC [Suspect]
     Active Substance: CHONDROITIN SULFATE A\HYALURONATE SODIUM
  3. CEFUROXIME, 10 MG/ML [Suspect]
     Active Substance: CEFUROXIME SODIUM
     Indication: PROPHYLAXIS
     Route: 031
     Dates: start: 20180128, end: 20180124
  4. LIDOCAINE HCI 1% I PHENYLEPHRINE HCI 1.5% PF [Suspect]
     Active Substance: LIDOCAINE HYDROCHLORIDE\PHENYLEPHRINE HYDROCHLORIDE
     Indication: PUPIL DILATION PROCEDURE
     Route: 031
     Dates: start: 20180124, end: 20180124
  5. BALANCED SALT SOLUTION [Concomitant]
     Active Substance: CALCIUM CHLORIDE\MAGNESIUM CHLORIDE\POTASSIUM CHLORIDE\SODIUM ACETATE\SODIUM CHLORIDE\SODIUM CITRATE
  6. LIDOCAINE HCI 1% I PHENYLEPHRINE HCI 1.5% PF [Suspect]
     Active Substance: LIDOCAINE HYDROCHLORIDE\PHENYLEPHRINE HYDROCHLORIDE
     Indication: LOCAL ANAESTHESIA
     Route: 031
     Dates: start: 20180124, end: 20180124

REACTIONS (1)
  - Toxic anterior segment syndrome [None]

NARRATIVE: CASE EVENT DATE: 20180124
